FAERS Safety Report 21128223 (Version 2)
Quarter: 2022Q3

REPORT INFORMATION
  Report Type: Spontaneous
  Country: US (occurrence: US)
  Receive Date: 20220725
  Receipt Date: 20220808
  Transmission Date: 20221027
  Serious: No
  Sender: FDA-Public Use
  Company Number: US-PFIZER INC-PV202200029162

PATIENT
  Age: 68 Year
  Sex: Female

DRUGS (1)
  1. INLYTA [Suspect]
     Active Substance: AXITINIB
     Dosage: 10 MG, ALTERNATE DAY (EVERY OTHER DAY DOSING, TWICE DAILY)

REACTIONS (3)
  - Blood pressure increased [Unknown]
  - Hypertension [Unknown]
  - Off label use [Unknown]
